FAERS Safety Report 16206722 (Version 3)
Quarter: 2021Q3

REPORT INFORMATION
  Report Type: Report from Study
  Country: CA (occurrence: CA)
  Receive Date: 20190417
  Receipt Date: 20210809
  Transmission Date: 20211014
  Serious: Yes (Other)
  Sender: FDA-Public Use
  Company Number: PHHY2014CA020430

PATIENT
  Age: 63 Year
  Sex: Female

DRUGS (5)
  1. SANDOSTATIN LAR DEPOT [Suspect]
     Active Substance: OCTREOTIDE ACETATE
     Indication: CARCINOID TUMOUR
     Dosage: 40 MG, QMO (EVERY FOUR WEEKS)
     Route: 030
     Dates: start: 20121206
  2. PRODIUM [Concomitant]
     Indication: PRODUCT USED FOR UNKNOWN INDICATION
     Dosage: 1 DF, PRN (1 PILL 4X DAILY, PRN)
     Route: 065
  3. RAMIPRIL. [Concomitant]
     Active Substance: RAMIPRIL
     Indication: PRODUCT USED FOR UNKNOWN INDICATION
     Dosage: 5 MG, QD
     Route: 048
  4. SANDOSTATIN LAR DEPOT [Suspect]
     Active Substance: OCTREOTIDE ACETATE
     Dosage: 20 MG, QMO (ONCE A MONTH)
     Route: 030
     Dates: start: 20150528
  5. SANDOSTATIN LAR DEPOT [Suspect]
     Active Substance: OCTREOTIDE ACETATE
     Dosage: 30 MG, QMO
     Route: 030
     Dates: start: 20170503

REACTIONS (15)
  - Abdominal pain [Recovering/Resolving]
  - Blood pressure systolic increased [Unknown]
  - Blood potassium increased [Unknown]
  - Hypertension [Recovered/Resolved]
  - Dizziness [Unknown]
  - Headache [Recovered/Resolved]
  - Influenza [Recovering/Resolving]
  - Oropharyngeal pain [Recovering/Resolving]
  - Blood pressure increased [Unknown]
  - Asthenia [Unknown]
  - Blood pressure systolic increased [Recovered/Resolved]
  - Malaise [Unknown]
  - Rhinorrhoea [Unknown]
  - Fatigue [Unknown]
  - Flushing [Unknown]

NARRATIVE: CASE EVENT DATE: 20150723
